FAERS Safety Report 7619969-7 (Version None)
Quarter: 2011Q3

REPORT INFORMATION
  Report Type: 
  Country: None (occurrence: None)
  Receive Date: 20110719
  Receipt Date: 20110706
  Transmission Date: 20111222
  Serious: Yes (Other)
  Sender: FDA-Public Use
  Company Number: US-JNJFOC-20110702790

PATIENT
  Sex: Female
  Weight: 47.63 kg

DRUGS (4)
  1. AMITRIPTYLINE HCL [Concomitant]
     Indication: SLEEP DISORDER
     Dosage: AT BED TIME
     Route: 048
     Dates: start: 20000101
  2. ELMIRON [Suspect]
     Indication: BLADDER DISORDER
     Dosage: 2 IN AM AND PM
     Route: 048
     Dates: start: 20000101
  3. ELMIRON [Suspect]
     Dosage: 2 IN AM AND PM
     Route: 048
     Dates: start: 20000101
  4. ELMIRON [Suspect]
     Dosage: 2 IN AM AND PM
     Route: 048
     Dates: start: 20000101

REACTIONS (3)
  - CONDITION AGGRAVATED [None]
  - BLADDER PAIN [None]
  - INCORRECT DOSE ADMINISTERED [None]
